FAERS Safety Report 21325549 (Version 1)
Quarter: 2022Q3

REPORT INFORMATION
  Report Type: Spontaneous
  Country: GR (occurrence: GR)
  Receive Date: 20220912
  Receipt Date: 20220912
  Transmission Date: 20221026
  Serious: Yes (Hospitalization)
  Sender: FDA-Public Use
  Company Number: None

PATIENT
  Age: 80 Year
  Sex: Male
  Weight: 70 kg

DRUGS (6)
  1. VEKLURY [Suspect]
     Active Substance: REMDESIVIR
     Indication: COVID-19
     Dosage: 200 MG, ONCE
     Route: 042
     Dates: start: 20220118, end: 20220118
  2. VEKLURY [Suspect]
     Active Substance: REMDESIVIR
     Indication: Respiratory tract infection
     Dosage: 100 MG, QD
     Route: 042
     Dates: start: 20220119, end: 20220122
  3. PEPTAN [Concomitant]
     Indication: Gastrooesophageal reflux prophylaxis
     Dosage: 40 MG, QD
     Route: 048
     Dates: start: 20220119
  4. BEGALIN [SULTAMICILLIN] [Concomitant]
     Indication: Pneumonia
     Dosage: 3 GR FOUR TIMES A DAY
     Route: 048
     Dates: start: 20220120, end: 20220121
  5. DEXATON [DEXAMETHASONE SODIUM PHOSPHATE] [Concomitant]
     Indication: Pneumonia
     Dosage: 8 MG (3/4 X1)
     Route: 048
     Dates: start: 20220119
  6. ENOXAPARIN SODIUM [Concomitant]
     Active Substance: ENOXAPARIN SODIUM
     Indication: Atrial flutter
     Dosage: 0.6 (1X2)
     Dates: start: 20220119

REACTIONS (2)
  - International normalised ratio abnormal [Recovering/Resolving]
  - Hypertransaminasaemia [Recovering/Resolving]

NARRATIVE: CASE EVENT DATE: 20220121
